FAERS Safety Report 5888004-3 (Version None)
Quarter: 2008Q3

REPORT INFORMATION
  Report Type: 
  Country: None (occurrence: None)
  Receive Date: 20080916
  Receipt Date: 20080908
  Transmission Date: 20090109
  Serious: Yes (Other)
  Sender: FDA-Public Use
  Company Number: 08-001423

PATIENT
  Age: 68 Year
  Sex: Male

DRUGS (7)
  1. DORYX [Suspect]
     Indication: EPIDIDYMITIS
     Dosage: 100MG, QD, ORAL
     Route: 048
     Dates: start: 20080829
  2. DORYX [Suspect]
     Indication: URINARY TRACT INFECTION
     Dosage: 100MG, QD, ORAL
     Route: 048
     Dates: start: 20080829
  3. CELEBREX [Concomitant]
  4. FLOMAX /00889901/ (MORNIFLUMATE) [Concomitant]
  5. ASACOL [Concomitant]
  6. ZOCOR [Concomitant]
  7. MACROBID /00024401/ (NITROFURANTOIN) [Concomitant]

REACTIONS (3)
  - HAEMATOCHEZIA [None]
  - HAEMORRHOIDS [None]
  - RECTAL DISCHARGE [None]
